FAERS Safety Report 7305227-7 (Version None)
Quarter: 2011Q1

REPORT INFORMATION
  Report Type: 
  Country: None (occurrence: None)
  Receive Date: 20110222
  Receipt Date: 20110216
  Transmission Date: 20110831
  Serious: Yes (Hospitalization, Other)
  Sender: FDA-Public Use
  Company Number: GB-PFIZER INC-2010147833

PATIENT
  Age: 62 Year
  Sex: Male

DRUGS (2)
  1. LIPITOR [Suspect]
     Dosage: 40 MG, UNK
     Dates: start: 20070101
  2. LIPITOR [Suspect]
     Dosage: 80 MG, UNK

REACTIONS (10)
  - PULMONARY EMBOLISM [None]
  - PRURITUS [None]
  - RASH [None]
  - NEPHROLITHIASIS [None]
  - THROMBOSIS [None]
  - CHEST PAIN [None]
  - SKIN TIGHTNESS [None]
  - COUGH [None]
  - MOOD SWINGS [None]
  - AMNESIA [None]
